FAERS Safety Report 5799240-9 (Version None)
Quarter: 2008Q3

REPORT INFORMATION
  Report Type: 
  Country: None (occurrence: None)
  Receive Date: 20080702
  Receipt Date: 20080623
  Transmission Date: 20090109
  Serious: Yes (Hospitalization, Other)
  Sender: FDA-Public Use
  Company Number: US-PFIZER INC-2008046500

PATIENT
  Sex: Male
  Weight: 104.54 kg

DRUGS (9)
  1. XALATAN [Suspect]
     Indication: OPEN ANGLE GLAUCOMA
  2. ALPHAGAN [Suspect]
  3. ADVAIR DISKUS 100/50 [Concomitant]
  4. TESTOSTERONE [Concomitant]
     Route: 061
  5. ALLOPURINOL [Concomitant]
  6. LOPID [Concomitant]
  7. HYDROCHLOROTHIAZIDE [Concomitant]
  8. LIPITOR [Concomitant]
  9. GLYBURIDE [Concomitant]

REACTIONS (6)
  - DRY SKIN [None]
  - EYE PRURITUS [None]
  - INTESTINAL OPERATION [None]
  - INTRAOCULAR PRESSURE INCREASED [None]
  - OCULAR HYPERAEMIA [None]
  - SKIN ULCER [None]
